FAERS Safety Report 16278500 (Version 1)
Quarter: 2019Q2

REPORT INFORMATION
  Report Type: Spontaneous
  Country: MX (occurrence: MX)
  Receive Date: 20190506
  Receipt Date: 20190506
  Transmission Date: 20190711
  Serious: Yes (Other)
  Sender: FDA-Public Use
  Company Number: MX-ASTRAZENECA-2019SE68737

PATIENT
  Age: 2969 Day
  Sex: Male
  Weight: 40 kg

DRUGS (22)
  1. RISPERIDONE. [Concomitant]
     Active Substance: RISPERIDONE
     Indication: ATTENTION DEFICIT/HYPERACTIVITY DISORDER
     Route: 048
     Dates: start: 20180201
  2. BUDESONIDE. [Concomitant]
     Active Substance: BUDESONIDE
     Indication: ASTHMA
     Dosage: UNKNOWN
     Route: 055
     Dates: start: 20180801
  3. MOTRIN [Concomitant]
     Active Substance: IBUPROFEN
     Indication: PYREXIA
     Dosage: UNKNOWN
     Route: 048
     Dates: start: 20190101
  4. VANNAIR [Suspect]
     Active Substance: BUDESONIDE\FORMOTEROL FUMARATE DIHYDRATE
     Indication: ASTHMA
     Dosage: 160 UG, EVERY 12 HOURS
     Route: 055
     Dates: start: 20180804, end: 20180905
  5. VANNAIR [Suspect]
     Active Substance: BUDESONIDE\FORMOTEROL FUMARATE DIHYDRATE
     Indication: ASTHMA
     Dosage: 160 UG, EVERY 12 HOURS
     Route: 055
     Dates: start: 20181204
  6. LEVOCETIRIZINE [Concomitant]
     Active Substance: LEVOCETIRIZINE
     Indication: ASTHMA
     Dosage: 5.0MG UNKNOWN
     Route: 048
     Dates: start: 20180501
  7. LEVODROPROPIZINE [Concomitant]
     Active Substance: LEVODROPROPIZINE
     Dosage: 60.0MG UNKNOWN
     Dates: start: 20190204
  8. VANNAIR [Suspect]
     Active Substance: BUDESONIDE\FORMOTEROL FUMARATE DIHYDRATE
     Indication: ASTHMA
     Dosage: 160 UG, EVERY 12 HOURS
     Route: 055
     Dates: start: 20190107
  9. CIFAMOX [Concomitant]
     Indication: URINARY TRACT INFECTION
     Dosage: UNKNOWN
     Route: 065
     Dates: start: 20181201, end: 20181205
  10. VANNAIR [Suspect]
     Active Substance: BUDESONIDE\FORMOTEROL FUMARATE DIHYDRATE
     Indication: ASTHMA
     Dosage: 2 INHALATIONS C / 12 HRS
     Route: 055
     Dates: start: 20190204
  11. ATOMOXETINE. [Concomitant]
     Active Substance: ATOMOXETINE HYDROCHLORIDE
     Indication: ATTENTION DEFICIT/HYPERACTIVITY DISORDER
     Route: 048
     Dates: start: 20180201
  12. AVAMYS [Concomitant]
     Active Substance: FLUTICASONE FUROATE
     Indication: ASTHMA
     Dosage: UNKNOWN
     Route: 055
     Dates: start: 20180401
  13. TRIFAMOX [Concomitant]
     Indication: SINUSITIS
     Dosage: 875.0MG UNKNOWN
     Route: 048
     Dates: start: 20181201, end: 20181201
  14. FUSIDIN [Concomitant]
     Indication: PENIS DISORDER
     Dosage: UNKNOWN
     Route: 065
     Dates: start: 20190101
  15. ILIADIN [Concomitant]
     Indication: SINUSITIS
     Dosage: UNKNOWN
     Route: 065
     Dates: start: 20180401, end: 20180501
  16. METICORTEN [Concomitant]
     Active Substance: PREDNISONE
     Indication: COUGH
     Dosage: UNKNOWN
     Route: 048
     Dates: start: 20180501, end: 20180801
  17. SOLUCION SALINA [Concomitant]
     Indication: SINUSITIS
     Dosage: UNKNOWN
     Route: 065
     Dates: start: 20180801, end: 20180801
  18. MONTELUKAST [Concomitant]
     Active Substance: MONTELUKAST SODIUM
  19. VANNAIR [Suspect]
     Active Substance: BUDESONIDE\FORMOTEROL FUMARATE DIHYDRATE
     Indication: ASTHMA
     Dosage: 80 / 4.5MCG 2 PUFFS C / 12 HRS
     Route: 055
     Dates: start: 20180502, end: 20180517
  20. COMBIVENT [Concomitant]
     Active Substance: ALBUTEROL SULFATE\IPRATROPIUM BROMIDE
     Indication: ASTHMA
     Route: 055
     Dates: start: 20180401
  21. CLARITYNED [Concomitant]
     Indication: ASTHMA
     Dosage: UNKNOWN
     Route: 065
     Dates: start: 20180801, end: 20181201
  22. STERIMAR [Concomitant]
     Active Substance: SEA WATER
     Indication: SINUSITIS
     Dosage: UNKNOWN
     Route: 065
     Dates: start: 20180501, end: 20180801

REACTIONS (25)
  - Cough [Not Recovered/Not Resolved]
  - Ear pain [Unknown]
  - Vomiting [Not Recovered/Not Resolved]
  - Pharyngotonsillitis [Unknown]
  - Dyspnoea [Unknown]
  - Platelet count decreased [Unknown]
  - Gastrointestinal motility disorder [Unknown]
  - Asthma [Not Recovered/Not Resolved]
  - Urinary tract infection [Recovered/Resolved]
  - Thrombosis [Unknown]
  - Influenza [Unknown]
  - Sinusitis [Not Recovered/Not Resolved]
  - Pharyngitis [Unknown]
  - Bronchospasm [Not Recovered/Not Resolved]
  - Penis disorder [Unknown]
  - Bronchial hyperreactivity [Not Recovered/Not Resolved]
  - Abdominal discomfort [Not Recovered/Not Resolved]
  - Weight decreased [Unknown]
  - Dyspepsia [Unknown]
  - Effusion [Recovered/Resolved]
  - Activated partial thromboplastin time abnormal [Unknown]
  - Eye contusion [Unknown]
  - Hypophagia [Unknown]
  - Gastrointestinal inflammation [Unknown]
  - Eyelid contusion [Unknown]

NARRATIVE: CASE EVENT DATE: 20180517
